FAERS Safety Report 16355281 (Version 2)
Quarter: 2019Q3

REPORT INFORMATION
  Report Type: Spontaneous
  Country: AU (occurrence: AU)
  Receive Date: 20190525
  Receipt Date: 20190909
  Transmission Date: 20191004
  Serious: Yes (Death, Hospitalization, Other)
  Sender: FDA-Public Use
  Company Number: AU-ABBVIE-19K-008-2797203-00

PATIENT
  Sex: Male
  Weight: 102 kg

DRUGS (2)
  1. MAVIRET [Suspect]
     Active Substance: GLECAPREVIR\PIBRENTASVIR
     Indication: HEPATITIS C
     Route: 048
     Dates: start: 201901, end: 201903
  2. METHADONE [Concomitant]
     Active Substance: METHADONE HYDROCHLORIDE
     Indication: PRODUCT USED FOR UNKNOWN INDICATION
     Route: 048

REACTIONS (6)
  - Encephalopathy [Unknown]
  - Blood bilirubin increased [Fatal]
  - Hepatic cirrhosis [Fatal]
  - Acute kidney injury [Fatal]
  - Escherichia sepsis [Fatal]
  - Coagulopathy [Unknown]

NARRATIVE: CASE EVENT DATE: 2019
